FAERS Safety Report 15074658 (Version 1)
Quarter: 2018Q2

REPORT INFORMATION
  Report Type: Report from Study
  Country: US (occurrence: US)
  Receive Date: 20180627
  Receipt Date: 20180627
  Transmission Date: 20180711
  Serious: No
  Sender: FDA-Public Use
  Company Number: US-SAOL THERAPEUTICS-2017SAO01098

PATIENT
  Age: 67 Year
  Sex: Female

DRUGS (16)
  1. DILAUDID [Suspect]
     Active Substance: HYDROMORPHONE HYDROCHLORIDE
     Dosage: 3.934 MG, \DAY
     Route: 037
     Dates: start: 20170528
  2. COMPOUNDED BACLOFEN [Suspect]
     Active Substance: BACLOFEN
     Dosage: 112.42 ?G, \DAY
     Route: 037
     Dates: start: 20150501, end: 20150528
  3. COMPOUNDED BACLOFEN [Suspect]
     Active Substance: BACLOFEN
     Dosage: 189.38 ?G, \DAY
     Route: 037
     Dates: start: 20150501, end: 20150528
  4. BUPIVACAINE. [Suspect]
     Active Substance: BUPIVACAINE
     Dosage: 23.997 MG, \DAY
     Route: 037
     Dates: start: 20170528
  5. COMPOUNDED BACLOFEN [Suspect]
     Active Substance: BACLOFEN
     Dosage: 196.73 ?G, \DAY
     Route: 037
     Dates: start: 20150528
  6. BUPIVACAINE. [Suspect]
     Active Substance: BUPIVACAINE
     Dosage: 37.875 MG, \DAY
     Route: 037
     Dates: start: 20150501, end: 20170528
  7. BUPIVACAINE. [Suspect]
     Active Substance: BUPIVACAINE
     Dosage: 39.346 MG, \DAY
     Route: 037
     Dates: start: 20170528
  8. CLONIDINE. [Suspect]
     Active Substance: CLONIDINE
     Dosage: 119.98 ?G, \DAY
     Route: 037
     Dates: start: 20170528
  9. COMPOUNDED BACLOFEN [Suspect]
     Active Substance: BACLOFEN
     Dosage: 119.98 ?G, \DAY
     Route: 037
     Dates: start: 20150528
  10. CLONIDINE. [Suspect]
     Active Substance: CLONIDINE
     Dosage: 112.42 ?G, \DAY
     Route: 037
     Dates: start: 20150501, end: 20170528
  11. DILAUDID [Suspect]
     Active Substance: HYDROMORPHONE HYDROCHLORIDE
     Dosage: 2.2484 MG, \DAY
     Route: 037
     Dates: start: 20150501, end: 20150528
  12. DILAUDID [Suspect]
     Active Substance: HYDROMORPHONE HYDROCHLORIDE
     Dosage: 2.3997 MG, \DAY
     Route: 037
     Dates: start: 20170528
  13. CLONIDINE. [Suspect]
     Active Substance: CLONIDINE
     Dosage: 196.73 ?G, \DAY
     Route: 037
     Dates: start: 20170528
  14. CLONIDINE. [Suspect]
     Active Substance: CLONIDINE
     Dosage: 189.38 ?G, \DAY
     Route: 037
     Dates: start: 20150501, end: 20170528
  15. DILAUDID [Suspect]
     Active Substance: HYDROMORPHONE HYDROCHLORIDE
     Dosage: 3.787 MG, \DAY
     Route: 037
     Dates: start: 20150501, end: 20150528
  16. BUPIVACAINE. [Suspect]
     Active Substance: BUPIVACAINE
     Dosage: 22.484 MG, \DAY
     Route: 037
     Dates: start: 20150501, end: 20170528

REACTIONS (1)
  - Sedation [Recovered/Resolved]

NARRATIVE: CASE EVENT DATE: 20150528
